FAERS Safety Report 12088511 (Version 1)
Quarter: 2016Q1

REPORT INFORMATION
  Report Type: Spontaneous
  Country: US (occurrence: None)
  Receive Date: 20160216
  Receipt Date: 20160216
  Transmission Date: 20160526
  Serious: Yes (Life-Threatening, Hospitalization)
  Sender: FDA-Public Use
  Company Number: None

PATIENT
  Age: 59 Year
  Sex: Female
  Weight: 44.45 kg

DRUGS (4)
  1. VITAMIN D [Concomitant]
     Active Substance: CHOLECALCIFEROL
  2. PREVACID [Concomitant]
     Active Substance: LANSOPRAZOLE
  3. CALCIUM [Concomitant]
     Active Substance: CALCIUM
  4. RISEDRONATE 35MG [Suspect]
     Active Substance: RISEDRONATE SODIUM
     Indication: OSTEOPOROSIS
     Dosage: HAD TAKEN 2 WEEKS-ONE EACH WK  ONCE WEEKLY
     Dates: start: 20160124, end: 20160131

REACTIONS (1)
  - Epistaxis [None]

NARRATIVE: CASE EVENT DATE: 20160203
